FAERS Safety Report 14859646 (Version 2)
Quarter: 2018Q2

REPORT INFORMATION
  Report Type: Spontaneous
  Country: US (occurrence: US)
  Receive Date: 20180508
  Receipt Date: 20180608
  Transmission Date: 20180711
  Serious: Yes (Other)
  Sender: FDA-Public Use
  Company Number: US-009507513-1805USA000776

PATIENT
  Age: 33 Year
  Sex: Female

DRUGS (6)
  1. BIFIDOBACTERIUM (UNSPECIFIED) [Concomitant]
     Dosage: 4 MG DAILY
     Route: 048
  2. DIFICID [Suspect]
     Active Substance: FIDAXOMICIN
     Indication: CLOSTRIDIUM DIFFICILE INFECTION
     Dosage: 200 MG, BID
     Route: 048
  3. ACETAMINOPHEN (+) OXYCODONE HYDROCHLORIDE [Concomitant]
     Active Substance: ACETAMINOPHEN\OXYCODONE HYDROCHLORIDE
     Indication: PAIN
     Dosage: (5 AND 325 MG, RESPECTIVELY) ORALLY EVERY 6 HOURS AS NEEDED
     Route: 048
  4. ONDANSETRON [Concomitant]
     Active Substance: ONDANSETRON
     Indication: NAUSEA
     Dosage: 4 MG EVERY 12 HOURS AS NEEDED
     Route: 048
  5. SACCHAROMYCES BOULARDII [Concomitant]
     Active Substance: SACCHAROMYCES CEREVISIAE
     Dosage: 250 MG, BID
     Route: 048
  6. CYANOCOBALAMIN. [Concomitant]
     Active Substance: CYANOCOBALAMIN
     Dosage: 1,000 ?G ORALLY DAILY
     Route: 048

REACTIONS (2)
  - Pancytopenia [Recovered/Resolved]
  - Inappropriate schedule of drug administration [Unknown]
